FAERS Safety Report 9634516 (Version 2)
Quarter: 2013Q4

REPORT INFORMATION
  Report Type: Spontaneous
  Country: US (occurrence: US)
  Receive Date: 20131021
  Receipt Date: 20131021
  Transmission Date: 20140711
  Serious: No
  Sender: FDA-Public Use
  Company Number: US-PURDUE-USA-2013-0099688

PATIENT
  Sex: Male

DRUGS (4)
  1. BUTRANS [Suspect]
     Indication: PRODUCT USED FOR UNKNOWN INDICATION
     Dosage: 20 MCG/HR, UNK
     Route: 062
     Dates: start: 20120829, end: 20121227
  2. BUTRANS [Suspect]
     Dosage: 10 MCG/HR, UNK
     Route: 062
  3. HYDROCODONE [Concomitant]
     Indication: PAIN
     Dosage: 1 TO 2 (10/325MG), DAILY
     Route: 048
     Dates: start: 20120504
  4. DOXYCYCLINE                        /00055702/ [Concomitant]
     Indication: ANTIBIOTIC THERAPY
     Dosage: UNK, BID
     Route: 065

REACTIONS (1)
  - Urinary hesitation [Recovered/Resolved]
